FAERS Safety Report 20457362 (Version 4)
Quarter: 2022Q2

REPORT INFORMATION
  Report Type: Report from Study
  Country: JP (occurrence: JP)
  Receive Date: 20220210
  Receipt Date: 20220603
  Transmission Date: 20220721
  Serious: Yes (Other)
  Sender: FDA-Public Use
  Company Number: JP-Eisai-202111521_PENT_C_1

PATIENT
  Age: 76 Year
  Sex: Female
  Weight: 47 kg

DRUGS (19)
  1. E-7386 [Suspect]
     Active Substance: E-7386
     Indication: Cholangiocarcinoma
     Route: 048
     Dates: start: 20211021, end: 20220202
  2. LENVATINIB [Suspect]
     Active Substance: LENVATINIB
     Indication: Cholangiocarcinoma
     Route: 048
     Dates: start: 20211026, end: 20220202
  3. LEVOTHYROXINE [Concomitant]
     Active Substance: LEVOTHYROXINE
     Indication: Hypothyroidism
     Route: 048
     Dates: start: 1999
  4. LEVOTHYROXINE [Concomitant]
     Active Substance: LEVOTHYROXINE
     Route: 048
     Dates: start: 2011
  5. CALCIUM ASPARTATE [Concomitant]
     Active Substance: CALCIUM ASPARTATE
     Indication: Osteoporosis
     Route: 048
     Dates: start: 2002
  6. CELECOXIB [Concomitant]
     Active Substance: CELECOXIB
     Indication: Arthralgia
     Route: 048
     Dates: start: 2002
  7. RAMOSETRON HYDROCHLORIDE [Concomitant]
     Active Substance: RAMOSETRON HYDROCHLORIDE
     Indication: Prophylaxis of nausea and vomiting
     Route: 048
     Dates: start: 20211021
  8. AMLODIPINE [Concomitant]
     Active Substance: AMLODIPINE BESYLATE
     Indication: Hypertension
     Route: 048
     Dates: start: 20211028
  9. GLYCOSAMINOGLYCANS [Concomitant]
     Active Substance: GLYCOSAMINOGLYCANS
     Indication: Palmar-plantar erythrodysaesthesia syndrome
     Route: 062
     Dates: start: 20211118
  10. MYSER [Concomitant]
     Indication: Palmar-plantar erythrodysaesthesia syndrome
     Route: 062
     Dates: start: 20211209
  11. LOPERAMIDE HYDROCHLORIDE [Concomitant]
     Active Substance: LOPERAMIDE HYDROCHLORIDE
     Indication: Diarrhoea
     Route: 048
     Dates: start: 20211209
  12. BIFIDOBACTERIUM SPP. [Concomitant]
     Active Substance: BIFIDOBACTERIUM SPP.
     Indication: Dysbiosis
     Route: 048
  13. CANDESARTAN CILEXETIL [Concomitant]
     Active Substance: CANDESARTAN CILEXETIL
     Indication: Hypertension
     Route: 048
     Dates: start: 20220120
  14. ESCHERICHIA COLI\HYDROCORTISONE [Concomitant]
     Active Substance: ESCHERICHIA COLI\HYDROCORTISONE
     Indication: Haemorrhoids
     Route: 062
     Dates: start: 20220120
  15. DIPHENHYDRAMINE [Concomitant]
     Active Substance: DIPHENHYDRAMINE
     Indication: Eczema
     Route: 062
     Dates: start: 20220206
  16. LASIX [Concomitant]
     Active Substance: FUROSEMIDE
     Indication: Oedema
     Route: 048
     Dates: start: 20220209
  17. SPIRONOLACTONE [Concomitant]
     Active Substance: SPIRONOLACTONE
     Indication: Oedema
     Route: 048
     Dates: start: 20220209
  18. DIFLUPREDNATE [Concomitant]
     Active Substance: DIFLUPREDNATE
     Indication: Palmar-plantar erythrodysaesthesia syndrome
     Route: 062
     Dates: start: 20211209
  19. HEMOPORISON [Concomitant]
     Indication: Haemorrhoids
     Route: 062
     Dates: start: 20220120

REACTIONS (2)
  - Diarrhoea [Recovered/Resolved]
  - Biliary tract infection [Recovering/Resolving]

NARRATIVE: CASE EVENT DATE: 20211207
